FAERS Safety Report 17070573 (Version 1)
Quarter: 2019Q4

REPORT INFORMATION
  Report Type: Spontaneous
  Country: US (occurrence: US)
  Receive Date: 20191125
  Receipt Date: 20191125
  Transmission Date: 20200122
  Serious: Yes (Other)
  Sender: FDA-Public Use
  Company Number: US-PFIZER INC-2019441081

PATIENT
  Age: 74 Year
  Sex: Female

DRUGS (6)
  1. SIMPONI [Suspect]
     Active Substance: GOLIMUMAB
     Dosage: UNK (8 WEEKS)
  2. METHOTREXATE SODIUM. [Suspect]
     Active Substance: METHOTREXATE SODIUM
     Indication: RHEUMATOID ARTHRITIS
     Dosage: UNK UNK, 4X/DAY [2.5 X 4 A DAY]
  3. HUMIRA [Suspect]
     Active Substance: ADALIMUMAB
     Dosage: UNK [2- 30 DAY]
  4. HUMIRA [Suspect]
     Active Substance: ADALIMUMAB
     Dosage: UNK [3-30 DAY]
  5. ACTEMRA [Suspect]
     Active Substance: TOCILIZUMAB
     Dosage: UNK [1X 4 WEEKS]
  6. HUMIRA [Suspect]
     Active Substance: ADALIMUMAB
     Dosage: UNK [1- 30 DAY]

REACTIONS (3)
  - Contusion [Unknown]
  - Weight increased [Unknown]
  - Haemorrhage [Unknown]
